FAERS Safety Report 5441670-9 (Version None)
Quarter: 2007Q3

REPORT INFORMATION
  Report Type: 
  Country: None (occurrence: None)
  Receive Date: 20070904
  Receipt Date: 20070829
  Transmission Date: 20080115
  Serious: Yes (Life-Threatening)
  Sender: FDA-Public Use
  Company Number: IT-BAYER-200715007GDS

PATIENT
  Age: 81 Year
  Sex: Male

DRUGS (2)
  1. CIPROXIN [Suspect]
     Indication: ANTIBIOTIC PROPHYLAXIS
     Dosage: TOTAL DAILY DOSE: 1000 MG
     Route: 048
     Dates: start: 20070725, end: 20070810
  2. TAZOCIN [Concomitant]
     Indication: ANTIBIOTIC PROPHYLAXIS
     Route: 042
     Dates: start: 20070730, end: 20070810

REACTIONS (2)
  - HAEMATURIA [None]
  - THROMBOCYTOPENIA [None]
